FAERS Safety Report 12216781 (Version 1)
Quarter: 2016Q1

REPORT INFORMATION
  Report Type: Spontaneous
  Country: US (occurrence: US)
  Receive Date: 20160329
  Receipt Date: 20160329
  Transmission Date: 20160526
  Serious: No
  Sender: FDA-Public Use
  Company Number: US-PFIZER INC-2016150999

PATIENT
  Sex: Female

DRUGS (1)
  1. GABAPENTIN. [Suspect]
     Active Substance: GABAPENTIN
     Dosage: 50 MG, UNK (50 MG, LIQUID)

REACTIONS (3)
  - Dysgeusia [Unknown]
  - Poor quality drug administered [Unknown]
  - Product taste abnormal [Unknown]
